FAERS Safety Report 23220123 (Version 1)
Quarter: 2023Q4

REPORT INFORMATION
  Report Type: Spontaneous
  Country: GB (occurrence: GB)
  Receive Date: 20231123
  Receipt Date: 20231123
  Transmission Date: 20240110
  Serious: Yes (Other)
  Sender: FDA-Public Use
  Company Number: GB-MHRA-MED-202311121215505670-HMWCK

PATIENT
  Sex: Female

DRUGS (4)
  1. METRONIDAZOLE [Suspect]
     Active Substance: METRONIDAZOLE
     Indication: Pericoronitis
     Dosage: 400MG 3 TIMES A DAY; ;
     Route: 065
  2. CODEINE [Concomitant]
     Active Substance: CODEINE
     Indication: Pain
     Dosage: UNK
     Route: 065
  3. IBUPROFEN [Concomitant]
     Active Substance: IBUPROFEN
     Indication: Pain
     Dosage: UNK
     Route: 065
  4. ACETAMINOPHEN [Concomitant]
     Active Substance: ACETAMINOPHEN
     Indication: Pain
     Dosage: UNK
     Route: 065

REACTIONS (9)
  - Migraine [Recovered/Resolved]
  - Illness [Recovered/Resolved]
  - Agitation [Recovered/Resolved]
  - Depression [Recovered/Resolved]
  - Hallucination [Recovered/Resolved]
  - Pruritus [Recovered/Resolved]
  - Vision blurred [Recovered/Resolved]
  - Eye pain [Recovering/Resolving]
  - Psychotic disorder [Recovered/Resolved]
